FAERS Safety Report 10522968 (Version 1)
Quarter: 2014Q4

REPORT INFORMATION
  Report Type: Spontaneous
  Country: GR (occurrence: GR)
  Receive Date: 20141016
  Receipt Date: 20141016
  Transmission Date: 20150528
  Serious: Yes (Other)
  Sender: FDA-Public Use
  Company Number: PHHY2014GR135297

PATIENT
  Age: 67 Year
  Sex: Female

DRUGS (4)
  1. METOCLOPRAMIDE. [Concomitant]
     Active Substance: METOCLOPRAMIDE
     Indication: ABDOMINAL PAIN UPPER
     Route: 030
  2. DIAZEPAM. [Concomitant]
     Active Substance: DIAZEPAM
     Indication: ABDOMINAL PAIN UPPER
     Route: 030
  3. RANITIDINE [Suspect]
     Active Substance: RANITIDINE\RANITIDINE HYDROCHLORIDE
     Indication: ABDOMINAL PAIN UPPER
     Route: 030
  4. CIMETIDINE [Suspect]
     Active Substance: CIMETIDINE
     Indication: ABDOMINAL PAIN UPPER
     Route: 065

REACTIONS (8)
  - Oral discomfort [Recovered/Resolved]
  - Rhinorrhoea [Recovered/Resolved]
  - Cough [Recovered/Resolved]
  - Sneezing [Recovered/Resolved]
  - Headache [Recovered/Resolved]
  - Erythema [Recovered/Resolved]
  - Drug hypersensitivity [Unknown]
  - Hypersensitivity [Unknown]
